FAERS Safety Report 22586527 (Version 1)
Quarter: 2023Q2

REPORT INFORMATION
  Report Type: Spontaneous
  Country: US (occurrence: US)
  Receive Date: 20230611
  Receipt Date: 20230611
  Transmission Date: 20230722
  Serious: No
  Sender: FDA-Public Use
  Company Number: US-PERRIGO-22US015888

PATIENT

DRUGS (3)
  1. DICLOFENAC SODIUM [Suspect]
     Active Substance: DICLOFENAC SODIUM
     Indication: Tendon rupture
     Dosage: UNKNOWN AMOUNT TO RIGHT BICEP
     Route: 061
     Dates: start: 202209
  2. DICLOFENAC SODIUM [Suspect]
     Active Substance: DICLOFENAC SODIUM
     Dosage: APPROXIMATELY 2 GRAMS TO EACH FOOT, SINGLE
     Route: 061
     Dates: start: 2022, end: 2022
  3. DICLOFENAC SODIUM [Suspect]
     Active Substance: DICLOFENAC SODIUM
     Dosage: APPROXIMATELY 4 GRAMS, UNKNOWN
     Route: 061
     Dates: start: 2022

REACTIONS (4)
  - Off label use [Unknown]
  - Product administered at inappropriate site [Unknown]
  - Underdose [Unknown]
  - Incorrect product administration duration [Unknown]

NARRATIVE: CASE EVENT DATE: 20220101
